FAERS Safety Report 13108202 (Version 2)
Quarter: 2017Q1

REPORT INFORMATION
  Report Type: Spontaneous
  Country: US (occurrence: US)
  Receive Date: 20170112
  Receipt Date: 20170215
  Transmission Date: 20170428
  Serious: Yes (Death, Other)
  Sender: FDA-Public Use
  Company Number: US-009507513-1701USA003087

PATIENT
  Age: 59 Year
  Sex: Male
  Weight: 129.25 kg

DRUGS (1)
  1. KEYTRUDA [Suspect]
     Active Substance: PEMBROLIZUMAB
     Indication: MALIGNANT MELANOMA
     Dosage: 200 MG, EVERY 3 WEEKS
     Route: 042
     Dates: start: 20161230, end: 20161230

REACTIONS (2)
  - Malignant neoplasm progression [Fatal]
  - Apnoea [Unknown]

NARRATIVE: CASE EVENT DATE: 20170101
